FAERS Safety Report 9310374 (Version 1)
Quarter: 2013Q2

REPORT INFORMATION
  Report Type: Spontaneous
  Country: FR (occurrence: FR)
  Receive Date: 20130527
  Receipt Date: 20130527
  Transmission Date: 20140414
  Serious: Yes (Life-Threatening, Hospitalization)
  Sender: FDA-Public Use
  Company Number: FR-BRISTOL-MYERS SQUIBB COMPANY-18923946

PATIENT
  Age: 83 Year
  Sex: Male

DRUGS (1)
  1. COUMADINE [Suspect]
     Route: 048
     Dates: start: 20130316

REACTIONS (2)
  - Subdural haematoma [Recovered/Resolved]
  - Fall [Unknown]
